FAERS Safety Report 8524234-X (Version None)
Quarter: 2012Q3

REPORT INFORMATION
  Report Type: 
  Country: None (occurrence: None)
  Receive Date: 20120720
  Receipt Date: 20120705
  Transmission Date: 20120928
  Serious: Yes (Hospitalization)
  Sender: FDA-Public Use
  Company Number: AU-ALEXION PHARMACEUTICALS INC.-A201201290

PATIENT
  Sex: Female

DRUGS (16)
  1. PIPERACILLIN AND TAZOBACTAM [Concomitant]
     Dosage: UNK
  2. PENICILLIN [Concomitant]
     Dosage: 1 TABLET DAILY
  3. PANTOPRAZOLE [Concomitant]
     Dosage: 40 MG, QD
  4. BIOMAG [Concomitant]
     Dosage: 2 TABLETS TID
  5. OSTELIN [Concomitant]
     Dosage: 2 TABLETS DAILY
  6. ACYCLOVIR [Concomitant]
     Dosage: 200 MG, TID (TDS)
  7. TEVATE [Concomitant]
     Dosage: 1 TABLET DAILY
  8. ECULIZUMAB [Suspect]
     Indication: PAROXYSMAL NOCTURNAL HAEMOGLOBINURIA
     Dosage: 900 MG UNK
     Route: 042
     Dates: end: 20090605
  9. PREDNISOLONE [Concomitant]
     Dosage: 10 MG, QD
  10. PROPANAZOLE [Concomitant]
     Dosage: 20 MG, QD
  11. OVESTIN [Concomitant]
     Dosage: UNK CREAM
  12. SLOW-K [Concomitant]
     Dosage: 2 TABLSTS TID
  13. INTRAGAM [Concomitant]
     Dosage: UNK MONTHLY
  14. BACTRIM [Concomitant]
     Dosage: 1 BD (MONDAY/THURSDAY)
  15. BUDESONIDE [Concomitant]
     Dosage: 3 MG, TID (TDS)
  16. CALCIUM [Concomitant]
     Dosage: 1 TABLET DAILY

REACTIONS (1)
  - SEPSIS [None]
